FAERS Safety Report 14124881 (Version 2)
Quarter: 2018Q1

REPORT INFORMATION
  Report Type: Spontaneous
  Country: US (occurrence: US)
  Receive Date: 20171025
  Receipt Date: 20180122
  Transmission Date: 20180508
  Serious: No
  Sender: FDA-Public Use
  Company Number: US-AUROBINDO-AUR-APU-2017-40250

PATIENT
  Sex: Male

DRUGS (1)
  1. VALSARTAN TABLETS USP 160MG [Suspect]
     Active Substance: VALSARTAN
     Indication: HYPERTENSION
     Dosage: 160 MG, TWO TIMES A DAY
     Route: 065
     Dates: start: 20170818, end: 20170906

REACTIONS (3)
  - Drug ineffective [Recovered/Resolved]
  - Joint swelling [Unknown]
  - Peripheral swelling [Unknown]
